FAERS Safety Report 9624411 (Version 2)
Quarter: 2013Q4

REPORT INFORMATION
  Report Type: Report from Study
  Country: NL (occurrence: NL)
  Receive Date: 20131015
  Receipt Date: 20131217
  Transmission Date: 20140711
  Serious: Yes (Hospitalization)
  Sender: FDA-Public Use
  Company Number: NL-ASTRAZENECA-2013SE75660

PATIENT
  Age: 0 Year
  Sex: Female
  Weight: 3.3 kg

DRUGS (5)
  1. SYNAGIS [Suspect]
     Indication: PREMATURE BABY
     Route: 030
     Dates: start: 20130905
  2. MOTILIUM [Concomitant]
     Indication: PRODUCT USED FOR UNKNOWN INDICATION
     Dosage: 1 MG/ML, 3 IN 1 DAY
  3. RANITIDINE [Concomitant]
     Indication: PRODUCT USED FOR UNKNOWN INDICATION
     Dosage: 150 MG/10 ML, 2 IN 1 DAY
  4. FERRO [Concomitant]
     Indication: PRODUCT USED FOR UNKNOWN INDICATION
     Dosage: 20 MG/ML, 2 IN 1 DAY
  5. ERYTROMYCINE [Concomitant]
     Indication: GASTROINTESTINAL MOTILITY DISORDER
     Dosage: 125MG/5ML 30MG/3TIMES DAILY

REACTIONS (4)
  - Infantile spitting up [Not Recovered/Not Resolved]
  - Fluid intake reduced [Not Recovered/Not Resolved]
  - Gastrooesophageal reflux disease [Unknown]
  - Growth retardation [Recovering/Resolving]
